FAERS Safety Report 15640415 (Version 1)
Quarter: 2018Q4

REPORT INFORMATION
  Report Type: Spontaneous
  Country: US (occurrence: US)
  Receive Date: 20181120
  Receipt Date: 20181120
  Transmission Date: 20190205
  Serious: Yes (Other)
  Sender: FDA-Public Use
  Company Number: US-BAYER-2018-211251

PATIENT
  Age: 70 Year
  Sex: Male
  Weight: 91 kg

DRUGS (1)
  1. BAYER LOW DOSE [Suspect]
     Active Substance: ASPIRIN
     Indication: CARDIAC DISORDER
     Dosage: 1 DF, HS
     Route: 048
     Dates: start: 2013

REACTIONS (4)
  - Product use in unapproved indication [Unknown]
  - Asthenia [Unknown]
  - Dizziness [Unknown]
  - Vascular graft [Unknown]

NARRATIVE: CASE EVENT DATE: 201803
